FAERS Safety Report 9181741 (Version 1)
Quarter: 2013Q1

REPORT INFORMATION
  Report Type: Spontaneous
  Country: US (occurrence: US)
  Receive Date: 20130322
  Receipt Date: 20130322
  Transmission Date: 20140127
  Serious: Yes (Other)
  Sender: FDA-Public Use
  Company Number: US-JNJFOC-20130311331

PATIENT
  Sex: 0

DRUGS (2)
  1. DOXORUBICIN HYDROCHLORIDE (DOXIL) [Suspect]
     Indication: BREAST CANCER METASTATIC
     Route: 042
  2. LAPATINIB [Suspect]
     Indication: BREAST CANCER METASTATIC
     Route: 048

REACTIONS (1)
  - Oedema [Unknown]
